FAERS Safety Report 4763407-9 (Version None)
Quarter: 2005Q3

REPORT INFORMATION
  Report Type: 
  Country: None (occurrence: None)
  Receive Date: 20050908
  Receipt Date: 20050614
  Transmission Date: 20060218
  Serious: Yes (Hospitalization)
  Sender: FDA-Public Use
  Company Number: FRWYE746215JUN05

PATIENT
  Age: 34 Year
  Sex: Female

DRUGS (5)
  1. ENBREL [Suspect]
     Indication: RHEUMATOID ARTHRITIS
     Route: 058
     Dates: start: 20050602, end: 20050609
  2. ENBREL [Suspect]
     Route: 058
     Dates: start: 20050701, end: 20050801
  3. ENBREL [Suspect]
     Route: 058
     Dates: start: 20050801
  4. METHOTREXATE [Concomitant]
     Dates: start: 20050601
  5. CORTANCYL [Concomitant]
     Dates: start: 20020101

REACTIONS (3)
  - BASILAR MIGRAINE [None]
  - CONFUSIONAL STATE [None]
  - VISUAL ACUITY REDUCED [None]
